FAERS Safety Report 10703769 (Version 1)
Quarter: 2015Q1

REPORT INFORMATION
  Report Type: Spontaneous
  Country: US (occurrence: US)
  Receive Date: 20150112
  Receipt Date: 20150112
  Transmission Date: 20150721
  Serious: No
  Sender: FDA-Public Use
  Company Number: US-PFIZER INC-2015006231

PATIENT
  Sex: Male

DRUGS (1)
  1. VIAGRA [Suspect]
     Active Substance: SILDENAFIL CITRATE
     Dosage: UNK

REACTIONS (4)
  - Ejaculation disorder [Unknown]
  - Premature ejaculation [Unknown]
  - Semen viscosity increased [Unknown]
  - Semen volume increased [Unknown]

NARRATIVE: CASE EVENT DATE: 201501
